FAERS Safety Report 16017612 (Version 1)
Quarter: 2019Q1

REPORT INFORMATION
  Report Type: Spontaneous
  Country: US (occurrence: US)
  Receive Date: 20190204
  Receipt Date: 20190204
  Transmission Date: 20190418
  Serious: Yes (Hospitalization)
  Sender: FDA-Public Use
  Company Number: None

PATIENT
  Age: 59 Year
  Sex: Female

DRUGS (17)
  1. DEXTROAMPHET SACCHARAT, AMPHET ASPARTATE, DEXTROAMPHET SULFATE AND AMPHET SULFAT [Concomitant]
     Active Substance: AMPHETAMINE ASPARTATE\AMPHETAMINE SULFATE\DEXTROAMPHETAMINE SACCHARATE\DEXTROAMPHETAMINE SULFATE
  2. CYCLOBENZAPR [Concomitant]
     Active Substance: CYCLOBENZAPRINE
  3. DIVALPROEX [Concomitant]
     Active Substance: DIVALPROEX SODIUM
  4. PROMETHAZINE [Concomitant]
     Active Substance: PROMETHAZINE\PROMETHAZINE HYDROCHLORIDE
  5. ESTRADIOL. [Concomitant]
     Active Substance: ESTRADIOL
  6. OXYCODONE [Concomitant]
     Active Substance: OXYCODONE
  7. RECLAST [Suspect]
     Active Substance: ZOLEDRONIC ACID
  8. PRAZOSIN. [Concomitant]
     Active Substance: PRAZOSIN
  9. PREDNISONE. [Concomitant]
     Active Substance: PREDNISONE
  10. QUETIAPINE. [Concomitant]
     Active Substance: QUETIAPINE
  11. AZITHROMYCIN ANHYDROUS. [Concomitant]
     Active Substance: AZITHROMYCIN ANHYDROUS
  12. KETOROLAC [Concomitant]
     Active Substance: KETOROLAC\KETOROLAC TROMETHAMINE
  13. PILOCARPINE. [Concomitant]
     Active Substance: PILOCARPINE
  14. XELJANZ XR [Suspect]
     Active Substance: TOFACITINIB CITRATE
     Indication: RHEUMATOID ARTHRITIS
     Route: 048
     Dates: start: 20181219
  15. GABAPENTIN. [Concomitant]
     Active Substance: GABAPENTIN
  16. NATURE-THROI [Concomitant]
  17. OMEPRAZOLE. [Concomitant]
     Active Substance: OMEPRAZOLE

REACTIONS (5)
  - Atypical pneumonia [None]
  - Joint swelling [None]
  - Dyspnoea [None]
  - Chest pain [None]
  - Arthralgia [None]

NARRATIVE: CASE EVENT DATE: 20190123
